FAERS Safety Report 6131490-4 (Version None)
Quarter: 2009Q1

REPORT INFORMATION
  Report Type: 
  Country: None (occurrence: None)
  Receive Date: 20090325
  Receipt Date: 20080822
  Transmission Date: 20090719
  Serious: Yes (Death, Hospitalization, Other)
  Sender: FDA-Public Use
  Company Number: US-BRISTOL-MYERS SQUIBB COMPANY-14312417

PATIENT
  Age: 75 Year
  Sex: Male

DRUGS (11)
  1. ERBITUX [Suspect]
     Indication: COLON CANCER METASTATIC
     Route: 042
     Dates: start: 20080818, end: 20080818
  2. FOLINIC ACID [Concomitant]
     Indication: COLON CANCER METASTATIC
     Dates: start: 20080818
  3. FLUOROURACIL [Concomitant]
     Indication: COLON CANCER METASTATIC
     Dates: start: 20080818
  4. OXALIPLATIN [Concomitant]
     Indication: COLON CANCER METASTATIC
     Dates: start: 20080818
  5. METOPROLOL TARTRATE [Concomitant]
  6. ZESTRIL [Concomitant]
  7. PROTONIX [Concomitant]
  8. DECADRON [Concomitant]
     Indication: PREMEDICATION
     Route: 042
  9. CIMETIDINE HCL [Concomitant]
     Indication: PREMEDICATION
     Route: 042
  10. BENADRYL [Concomitant]
     Indication: PREMEDICATION
     Route: 042
  11. KYTRIL [Concomitant]
     Indication: PREMEDICATION
     Route: 042

REACTIONS (7)
  - COMA [None]
  - FAECAL INCONTINENCE [None]
  - HYPOTENSION [None]
  - ORGAN FAILURE [None]
  - PULSE ABSENT [None]
  - PUPIL FIXED [None]
  - URINARY INCONTINENCE [None]
